FAERS Safety Report 9146781 (Version 2)
Quarter: 2013Q2

REPORT INFORMATION
  Report Type: Spontaneous
  Country: AU (occurrence: AU)
  Receive Date: 20130307
  Receipt Date: 20130401
  Transmission Date: 20140414
  Serious: Yes (Hospitalization)
  Sender: FDA-Public Use
  Company Number: PHHY2013AU022126

PATIENT
  Age: 85 Year
  Sex: Female

DRUGS (9)
  1. ACLASTA [Suspect]
     Dosage: 5 MG, UNK
     Route: 042
     Dates: start: 20111018
  2. ACIMAX [Concomitant]
     Dosage: 20 MG, BID
     Route: 048
  3. ALDACTONE [Concomitant]
     Dosage: 25 MG, UNK
     Route: 048
  4. ASTRIX [Concomitant]
     Dosage: 100 MG, UNK
     Route: 048
  5. BIOCON [Concomitant]
     Dosage: 5 MG, UNK
     Route: 048
  6. LIPITOR [Concomitant]
     Dosage: 40 MG, UNK
  7. VENTOLIN [Concomitant]
     Dosage: 100 MG, UNK
  8. SERTIDINE [Concomitant]
     Dosage: 20 MG, UNK
     Route: 048
  9. VAGIFEM [Concomitant]
     Dosage: UNK UKN, UNK

REACTIONS (2)
  - Hip fracture [Unknown]
  - Fall [Recovering/Resolving]
